FAERS Safety Report 18092895 (Version 2)
Quarter: 2021Q1

REPORT INFORMATION
  Report Type: Report from Study
  Country: FR (occurrence: FR)
  Receive Date: 20200730
  Receipt Date: 20210216
  Transmission Date: 20210419
  Serious: Yes (Hospitalization, Other)
  Sender: FDA-Public Use
  Company Number: FR-BRISTOL-MYERS SQUIBB COMPANY-BMS-2019-059981

PATIENT
  Age: 81 Year
  Sex: Male
  Weight: 86 kg

DRUGS (18)
  1. ADENURIC [Concomitant]
     Active Substance: FEBUXOSTAT
     Indication: GOUT
     Dosage: 80 MILLIGRAM,EVERY 1 DAY
     Route: 048
     Dates: start: 201807
  2. TRAMADOL. [Concomitant]
     Active Substance: TRAMADOL
     Indication: PAIN
     Dosage: UNK
     Route: 048
     Dates: start: 201905, end: 20190702
  3. KARDEGIC [Suspect]
     Active Substance: ASPIRIN DL-LYSINE
     Indication: PRODUCT USED FOR UNKNOWN INDICATION
     Dosage: 75 MILLIGRAM
     Route: 048
     Dates: start: 20181130
  4. FUROSEMIDE. [Concomitant]
     Active Substance: FUROSEMIDE
     Indication: HYPERTENSION
     Dosage: 40 MILLIGRAM, EVERY DAY
     Route: 048
     Dates: end: 20190503
  5. CORTANCYL [Concomitant]
     Active Substance: PREDNISONE
     Indication: ARTHRITIS
     Dosage: UNK
     Route: 048
     Dates: start: 20190503
  6. SPECIAFOLDINE [Concomitant]
     Active Substance: FOLIC ACID
     Indication: ANAEMIA
     Dosage: 5 MILLIGRAM, EVERY 1 DAY
     Route: 048
     Dates: start: 201905
  7. SERETIDE [Concomitant]
     Active Substance: FLUTICASONE PROPIONATE\SALMETEROL XINAFOATE
     Indication: ASTHMA
     Dosage: 500 MICROGRAM, EVERY 1 DAY
     Route: 050
     Dates: start: 2018, end: 201905
  8. FUROSEMIDE. [Concomitant]
     Active Substance: FUROSEMIDE
     Dosage: 80 MILLIGRAM, EVERY DAY
     Route: 048
     Dates: start: 20190503
  9. DOLIPRANE [Concomitant]
     Active Substance: ACETAMINOPHEN
     Indication: PAIN
     Dosage: 1000 MILLIGRAM
     Route: 048
     Dates: start: 201905
  10. RENITEC [ENALAPRILAT] [Concomitant]
     Active Substance: ENALAPRILAT
     Indication: HYPERTENSION
     Dosage: 20 MILLIGRAM, EVERY 1 DAY
     Route: 048
  11. ATORVASTATIN [Concomitant]
     Active Substance: ATORVASTATIN
     Dosage: 10 MILLIGRAM EVERY 1 DAY
     Route: 048
     Dates: start: 20190613
  12. LANSOPRAZOLE. [Concomitant]
     Active Substance: LANSOPRAZOLE
     Indication: HYPERCHLORHYDRIA
     Dosage: 30 MILLIGRAM
     Route: 048
     Dates: start: 2018
  13. ATORVASTATIN [Concomitant]
     Active Substance: ATORVASTATIN
     Indication: DYSLIPIDAEMIA
     Dosage: 20 MILLIGRAM EVERY 1 DAY
     Route: 048
     Dates: end: 20190613
  14. TARDYFERON [Concomitant]
     Active Substance: FERROUS SULFATE
     Indication: ANAEMIA
     Dosage: UNK
     Route: 048
     Dates: start: 201905
  15. SALBUTAMOL [Concomitant]
     Active Substance: ALBUTEROL
     Indication: ASTHMA
     Dosage: 100 MICROGRAM, EVERY 1 DAY
     Route: 050
     Dates: start: 2018, end: 201905
  16. APIXABAN [Suspect]
     Active Substance: APIXABAN
     Indication: PRODUCT USED FOR UNKNOWN INDICATION
     Dosage: 5 MILLIGRAM, DAILY
     Route: 048
     Dates: start: 20181207, end: 20190424
  17. ARANESP [Concomitant]
     Active Substance: DARBEPOETIN ALFA
     Indication: ANAEMIA
     Dosage: 30 MICROGRAM, EVERY 1 DAY
     Route: 048
     Dates: start: 20190503
  18. PREGABALIN. [Concomitant]
     Active Substance: PREGABALIN
     Indication: EPILEPSY
     Dosage: 25 MILLIGRAM
     Route: 048
     Dates: start: 2018, end: 201905

REACTIONS (3)
  - Septic shock [Recovered/Resolved]
  - Cardiac failure [Unknown]
  - Acute kidney injury [Unknown]

NARRATIVE: CASE EVENT DATE: 20190529
